FAERS Safety Report 4726044-8 (Version None)
Quarter: 2005Q3

REPORT INFORMATION
  Report Type: 
  Country: None (occurrence: None)
  Receive Date: 20050725
  Receipt Date: 20050712
  Transmission Date: 20060218
  Serious: Yes (Other)
  Sender: FDA-Public Use
  Company Number: HQWYE184313JUL05

PATIENT
  Age: 24 Year
  Sex: Female

DRUGS (1)
  1. TRIQUILAR-21              (LEVONORGESTREL/ETHINYL ESTRADIOL) [Suspect]
     Indication: ORAL CONTRACEPTION
     Dosage: 1 TABLET; ORAL
     Route: 048
     Dates: start: 20031201, end: 20050501

REACTIONS (2)
  - CONDITION AGGRAVATED [None]
  - RENAL CYST [None]
